FAERS Safety Report 11528232 (Version 1)
Quarter: 2015Q3

REPORT INFORMATION
  Report Type: Spontaneous
  Country: US (occurrence: US)
  Receive Date: 20150921
  Receipt Date: 20150921
  Transmission Date: 20151125
  Serious: No
  Sender: FDA-Public Use
  Company Number: US-ACTELION PHARMACEUTICALS US, INC.-A-US2014-108879

PATIENT
  Age: 54 Year
  Sex: Female

DRUGS (1)
  1. VENTAVIS [Suspect]
     Active Substance: ILOPROST
     Indication: COR PULMONALE CHRONIC
     Dosage: 5 MCG, 6-9 X/DAILY
     Route: 055
     Dates: start: 20140310

REACTIONS (4)
  - Systemic lupus erythematosus [Unknown]
  - Cough [Unknown]
  - Respiratory fume inhalation disorder [Unknown]
  - Throat irritation [Unknown]

NARRATIVE: CASE EVENT DATE: 20141122
